FAERS Safety Report 20767050 (Version 1)
Quarter: 2022Q2

REPORT INFORMATION
  Report Type: Spontaneous
  Country: JP (occurrence: JP)
  Receive Date: 20220429
  Receipt Date: 20220429
  Transmission Date: 20220721
  Serious: Yes (Death, Hospitalization, Other)
  Sender: FDA-Public Use
  Company Number: JP-BRISTOL-MYERS SQUIBB COMPANY-2022-028764

PATIENT
  Age: 70 Year
  Sex: Male

DRUGS (20)
  1. VIDAZA [Suspect]
     Active Substance: AZACITIDINE
     Indication: Myelodysplastic syndrome
     Dosage: 9 APR (THE PATIENT STARTED TO RECEIVE THE 1ST CYCLE OF VIDAZA )
     Route: 065
  2. VIDAZA [Suspect]
     Active Substance: AZACITIDINE
     Indication: Acute myeloid leukaemia
     Dosage: THE 2ND DOSE WAS INITIATED FROM 16 APR
     Route: 065
  3. VIDAZA [Suspect]
     Active Substance: AZACITIDINE
     Dosage: THE 3RD DOSE WAS INITIATED ON 17 APR
     Route: 065
  4. VIDAZA [Suspect]
     Active Substance: AZACITIDINE
     Dosage: THE 4TH DOSE WAS INITIATED, AND IT CONTINUED EVERY DAY UNTIL THE 7TH DOSE
     Route: 065
  5. VIDAZA [Suspect]
     Active Substance: AZACITIDINE
     Dosage: THE PATIENT STARTED TO RECEIVE THE 2ND CYCLE OF VIDAZA FROM 19 MAY
     Route: 065
  6. VIDAZA [Suspect]
     Active Substance: AZACITIDINE
     Dosage: HE PATIENT STARTED TO RECEIVE THE 3RD CYCLE OF VIDAZA FROM 18 JUN
     Route: 065
  7. VIDAZA [Suspect]
     Active Substance: AZACITIDINE
     Dosage: STARTED TO RECEIVE THE 4TH CYCLE OF VIDAZA FROM 27 JUL
     Route: 065
  8. VIDAZA [Suspect]
     Active Substance: AZACITIDINE
     Dosage: PATIENT STARTED TO RECEIVE THE 5TH CYCLE FROM 03 SEP
     Route: 065
  9. VIDAZA [Suspect]
     Active Substance: AZACITIDINE
     Dosage: RECEIVE THE 6TH CYCLE OF VIDAZA ROM 05 OCT
     Route: 065
  10. VIDAZA [Suspect]
     Active Substance: AZACITIDINE
     Dosage: STARTED TO RECEIVE THE 7TH CYCLE OF VIDAZA  FROM 06 NOV
     Route: 065
  11. VIDAZA [Suspect]
     Active Substance: AZACITIDINE
     Dosage: STARTED TO RECEIVETHE 8TH CYCLE OF VIDAZA FROM 07 DEC.
     Route: 065
  12. VIDAZA [Suspect]
     Active Substance: AZACITIDINE
     Dosage: STARTED TO RECEIVE THE 9TH CYCLE OF VIDAZA FROM 14 JAN OF THE FOLLOWING YEAR.
     Route: 065
  13. VIDAZA [Suspect]
     Active Substance: AZACITIDINE
     Dosage: STARTED TO RECEIVE THE 10TH CYCLE OF VIDAZA FROM 15 FEB.
     Route: 065
  14. VIDAZA [Suspect]
     Active Substance: AZACITIDINE
     Dosage: STARTED TO RECEIVE THE 11TH CYCLE OF VIDAZA FROM 15 MAR
     Route: 065
  15. VIDAZA [Suspect]
     Active Substance: AZACITIDINE
     Dosage: STARTED TO RECEIVE THE 12TH CYCLE OF VIDAZA  FROM 26 APR
     Route: 065
  16. VIDAZA [Suspect]
     Active Substance: AZACITIDINE
     Dosage: STARTED TO RECEIVE THE 13TH CYCLE OF VIDAZA FROM 21 JUN, AND TOTAL OF 4 DOSES WAS COMPLETED
     Route: 065
  17. VENETOCLAX [Suspect]
     Active Substance: VENETOCLAX
     Indication: Myelodysplastic syndrome
     Dosage: VEN WAS INITIATED FROM 26 APR
     Route: 048
  18. VENETOCLAX [Suspect]
     Active Substance: VENETOCLAX
     Indication: Acute myeloid leukaemia
     Dosage: DAY 10
     Route: 048
  19. VENETOCLAX [Suspect]
     Active Substance: VENETOCLAX
     Dosage: DAY14
     Route: 048
  20. VENETOCLAX [Suspect]
     Active Substance: VENETOCLAX
     Dosage: FROM DAY 17
     Route: 048

REACTIONS (10)
  - Pyrexia [Unknown]
  - Tumour lysis syndrome [Unknown]
  - Neck mass [Unknown]
  - Myelosuppression [Unknown]
  - Somnolence [Not Recovered/Not Resolved]
  - Subarachnoid haemorrhage [Unknown]
  - Diarrhoea [Unknown]
  - Pneumonia [Fatal]
  - Pyrexia [Unknown]
  - Pyrexia [Recovering/Resolving]
